FAERS Safety Report 16360820 (Version 2)
Quarter: 2019Q2

REPORT INFORMATION
  Report Type: Spontaneous
  Country: US (occurrence: US)
  Receive Date: 20190528
  Receipt Date: 20190619
  Transmission Date: 20190711
  Serious: Yes (Hospitalization, Other)
  Sender: FDA-Public Use
  Company Number: US-CLOVIS ONCOLOGY-CLO-2019-000981

PATIENT
  Age: 66 Year
  Sex: Female

DRUGS (5)
  1. RUBRACA [Suspect]
     Active Substance: RUCAPARIB CAMSYLATE
     Indication: OVARIAN CANCER
     Dosage: 600 MG, BID
     Dates: start: 201903, end: 20190410
  2. RUBRACA [Suspect]
     Active Substance: RUCAPARIB CAMSYLATE
     Dosage: 400 MG, BID
     Dates: start: 20190514
  3. RUBRACA [Suspect]
     Active Substance: RUCAPARIB CAMSYLATE
     Indication: FALLOPIAN TUBE CANCER
     Dosage: 600 MG, BID
     Dates: start: 201803, end: 20180610
  4. RUBRACA [Suspect]
     Active Substance: RUCAPARIB CAMSYLATE
     Dosage: 300 MG, BID
     Dates: start: 20190410
  5. EVISTA [Concomitant]
     Active Substance: RALOXIFENE HYDROCHLORIDE
     Indication: OSTEOPENIA

REACTIONS (11)
  - Loss of consciousness [Unknown]
  - Hallucination [Unknown]
  - Recurrent cancer [Unknown]
  - Infection [Unknown]
  - Hypophagia [Unknown]
  - Intestinal obstruction [Unknown]
  - Dysgeusia [Unknown]
  - Unevaluable event [Recovering/Resolving]
  - Weight abnormal [Recovered/Resolved]
  - Fatigue [Recovering/Resolving]
  - Malnutrition [Recovered/Resolved]

NARRATIVE: CASE EVENT DATE: 201806
